FAERS Safety Report 15264784 (Version 1)
Quarter: 2018Q3

REPORT INFORMATION
  Report Type: Spontaneous
  Country: None (occurrence: US)
  Receive Date: 20180810
  Receipt Date: 20180810
  Transmission Date: 20181010
  Serious: No
  Sender: FDA-Public Use
  Company Number: US-KVK-TECH, INC-2053541

PATIENT
  Sex: Male

DRUGS (1)
  1. DEXTROAMPHETAMINE SULFATE. [Suspect]
     Active Substance: DEXTROAMPHETAMINE SULFATE
     Indication: PRODUCT USED FOR UNKNOWN INDICATION
     Route: 048

REACTIONS (10)
  - Drug ineffective [Unknown]
  - Body temperature abnormal [Unknown]
  - Product solubility abnormal [Unknown]
  - Urine odour abnormal [Unknown]
  - Paraesthesia [Unknown]
  - Heart rate abnormal [Unknown]
  - Product taste abnormal [Unknown]
  - Fall [Unknown]
  - Dry eye [Unknown]
  - Hypoaesthesia [Unknown]
